FAERS Safety Report 6189404-7 (Version None)
Quarter: 2009Q2

REPORT INFORMATION
  Report Type: 
  Country: None (occurrence: None)
  Receive Date: 20090512
  Receipt Date: 20090415
  Transmission Date: 20091009
  Serious: Yes (Other)
  Sender: FDA-Public Use
  Company Number: 000580

PATIENT
  Age: 13 Day
  Sex: Female

DRUGS (4)
  1. PROSTAGLANDIN E1   (LIPO-PROSTAGLANDIN E1) [Suspect]
     Indication: PATENT DUCTUS ARTERIOSUS
     Dosage: (5NG/KG/MIN INTRAVENOUS DRIP), (10NG/KG/MIN INTRAVENOUS DRIP), (0.03?G/KG/MIN INTRAVENOUS DRIP)
     Route: 041
  2. PROSTAGLANDIN E1   (LIPO-PROSTAGLANDIN E1) [Suspect]
     Indication: PATENT DUCTUS ARTERIOSUS
     Dosage: (5NG/KG/MIN INTRAVENOUS DRIP), (10NG/KG/MIN INTRAVENOUS DRIP), (0.03?G/KG/MIN INTRAVENOUS DRIP)
     Route: 041
  3. PROSTAGLANDIN E1   (LIPO-PROSTAGLANDIN E1) [Suspect]
     Indication: PATENT DUCTUS ARTERIOSUS
     Dosage: (5NG/KG/MIN INTRAVENOUS DRIP), (10NG/KG/MIN INTRAVENOUS DRIP), (0.03?G/KG/MIN INTRAVENOUS DRIP)
     Route: 041
  4. INDOMETHACIN [Suspect]
     Indication: PATENT DUCTUS ARTERIOSUS

REACTIONS (6)
  - ASPARTATE AMINOTRANSFERASE INCREASED [None]
  - BLOOD BILIRUBIN INCREASED [None]
  - BLOOD LACTATE DEHYDROGENASE INCREASED [None]
  - DRUG INEFFECTIVE [None]
  - HAEMOLYTIC ANAEMIA [None]
  - NEONATAL DISORDER [None]
